FAERS Safety Report 5333563-2 (Version None)
Quarter: 2007Q2

REPORT INFORMATION
  Report Type: 
  Country: None (occurrence: None)
  Receive Date: 20070308
  Receipt Date: 20061113
  Transmission Date: 20071010
  Serious: No
  Sender: FDA-Public Use
  Company Number: 2006-BP-13192BP

PATIENT
  Sex: Male

DRUGS (15)
  1. SPIRIVA [Suspect]
     Indication: CHRONIC OBSTRUCTIVE PULMONARY DISEASE
     Dosage: 18 MCG (18 MCG, 1 IN 1 D), IH
     Route: 055
     Dates: start: 20050101
  2. PROCARDIA [Concomitant]
  3. PLAVIX [Concomitant]
  4. ZESTRIL [Concomitant]
  5. DIOVAN [Concomitant]
  6. LIPITOR [Concomitant]
  7. DIGOXIN [Concomitant]
  8. AVODART [Concomitant]
  9. UROXATRAL [Concomitant]
  10. PREVACID (LANSOPROAZOLE) [Concomitant]
  11. PILOCARPINE (PILOCARPINE) [Concomitant]
  12. XALATAN [Concomitant]
  13. ADVAIR DISKUS 100/50 [Concomitant]
  14. ATROVENT [Concomitant]
  15. NASACORT [Concomitant]

REACTIONS (2)
  - JOINT SWELLING [None]
  - OEDEMA PERIPHERAL [None]
